FAERS Safety Report 9664995 (Version 3)
Quarter: 2014Q1

REPORT INFORMATION
  Report Type: Spontaneous
  Country: IT (occurrence: IT)
  Receive Date: 20131101
  Receipt Date: 20140103
  Transmission Date: 20141002
  Serious: Yes (Other)
  Sender: FDA-Public Use
  Company Number: IT-SANTEN INC.-INC-13-000272

PATIENT
  Sex: Female

DRUGS (5)
  1. OFTAQUIX [Suspect]
     Indication: CONJUNCTIVITIS
     Dates: start: 20131010, end: 20131013
  2. VOLTAREN [Suspect]
     Dates: start: 20131009, end: 20131013
  3. MONOFLOXOFTA [Suspect]
     Dates: start: 20131009, end: 20131010
  4. AZYTER [Suspect]
     Indication: CONJUNCTIVITIS
     Dates: start: 20130927, end: 20131008
  5. HYALISTIL [Concomitant]
     Indication: DRY EYE
     Dates: start: 20130927

REACTIONS (2)
  - Eyelid oedema [Not Recovered/Not Resolved]
  - Conjunctival hyperaemia [Not Recovered/Not Resolved]
